FAERS Safety Report 7240499-9 (Version None)
Quarter: 2011Q1

REPORT INFORMATION
  Report Type: 
  Country: None (occurrence: None)
  Receive Date: 20110124
  Receipt Date: 20110118
  Transmission Date: 20110831
  Serious: No
  Sender: FDA-Public Use
  Company Number: US-PFIZER INC-2011003300

PATIENT
  Sex: Male

DRUGS (6)
  1. GABAPENTIN [Suspect]
     Indication: FIBROMYALGIA
     Dosage: 300 MG, 2X/DAY
     Route: 048
     Dates: start: 20100601, end: 20101201
  2. RANITIDINE [Concomitant]
     Indication: IRRITABLE BOWEL SYNDROME
     Dosage: 300 MG, 1X/DAY
     Route: 048
  3. RANITIDINE [Concomitant]
     Indication: GASTROOESOPHAGEAL REFLUX DISEASE
  4. NEXIUM [Concomitant]
     Indication: IRRITABLE BOWEL SYNDROME
     Dosage: 40 MG, 1X/DAY
     Route: 048
  5. LYRICA [Suspect]
     Indication: FIBROMYALGIA
     Dosage: 50 MG, 1X/DAY
     Route: 048
     Dates: start: 20101201, end: 20110101
  6. NEXIUM [Concomitant]
     Indication: GASTROOESOPHAGEAL REFLUX DISEASE

REACTIONS (7)
  - HYPOAESTHESIA [None]
  - SKIN BURNING SENSATION [None]
  - VISION BLURRED [None]
  - DIZZINESS [None]
  - HYPERAESTHESIA [None]
  - DRUG INEFFECTIVE [None]
  - PARAESTHESIA [None]
